FAERS Safety Report 5642918-8 (Version None)
Quarter: 2008Q1

REPORT INFORMATION
  Report Type: 
  Country: None (occurrence: None)
  Receive Date: 20080226
  Receipt Date: 20080212
  Transmission Date: 20080703
  Serious: Yes (Other)
  Sender: FDA-Public Use
  Company Number: 2008S1000041

PATIENT
  Age: 45 Year
  Sex: Female

DRUGS (1)
  1. ACITRETIN [Suspect]
     Indication: KERATOACANTHOMA
     Dosage: 20 MG; QD; PO
     Route: 048

REACTIONS (2)
  - SKIN LESION [None]
  - SKIN REACTION [None]
